FAERS Safety Report 10141836 (Version 2)
Quarter: 2014Q2

REPORT INFORMATION
  Report Type: Spontaneous
  Country: FR (occurrence: FR)
  Receive Date: 20140429
  Receipt Date: 20140429
  Transmission Date: 20141212
  Serious: Yes (Hospitalization)
  Sender: FDA-Public Use
  Company Number: PHHY2013FR059336

PATIENT
  Sex: 0

DRUGS (2)
  1. VORICONAZOLE [Suspect]
     Indication: ASPERGILLUS INFECTION
     Dosage: 280 MG, BID
     Route: 042
  2. ESOMEPRAZOLE [Interacting]

REACTIONS (5)
  - Toxicity to various agents [Recovering/Resolving]
  - Coma [Recovering/Resolving]
  - Altered state of consciousness [Recovering/Resolving]
  - Hallucinations, mixed [Recovering/Resolving]
  - Drug interaction [Unknown]
